FAERS Safety Report 6581223 (Version 2)
Quarter: 2020Q3

REPORT INFORMATION
  Report Type: Report from Study
  Country: DE (occurrence: DE)
  Receive Date: 20080314
  Receipt Date: 20080414
  Transmission Date: 20201105
  Serious: Yes (Death)
  Sender: FDA-Public Use
  Company Number: DE-ROCHE-551324

PATIENT
  Age: 77 Year
  Sex: Female
  Weight: 60 kg

DRUGS (2)
  1. IBU [Concomitant]
     Active Substance: IBUPROFEN
     Indication: OSTEOPOROSIS
     Dosage: DRUG NAME REPORTED AS ^IBU 600^ DOSAGE REGIMEN REPORTED AS ^1 DF X 2/DAY^
     Route: 048
  2. IBANDRONIC ACID. [Suspect]
     Active Substance: IBANDRONIC ACID
     Indication: OSTEOPOROSIS POSTMENOPAUSAL
     Dosage: DOSING FREQUENCY REPORTED FROM PROTOCOL TITLE.
     Route: 048
     Dates: start: 20070320

REACTIONS (1)
  - Cardiac failure [Fatal]
